FAERS Safety Report 18607888 (Version 1)
Quarter: 2020Q4

REPORT INFORMATION
  Report Type: Spontaneous
  Country: US (occurrence: US)
  Receive Date: 20201211
  Receipt Date: 20201211
  Transmission Date: 20210114
  Serious: Yes (Death)
  Sender: FDA-Public Use
  Company Number: US-MALLINCKRODT-T202005756

PATIENT
  Age: 72 Year
  Weight: 134 kg

DRUGS (1)
  1. INOMAX [Suspect]
     Active Substance: NITRIC OXIDE
     Indication: COVID-19
     Dosage: 20 PPM (INHALATION)
     Route: 055
     Dates: start: 20201127

REACTIONS (3)
  - Product use in unapproved indication [Unknown]
  - Product use issue [Unknown]
  - COVID-19 [Fatal]

NARRATIVE: CASE EVENT DATE: 2020
